FAERS Safety Report 6538583-8 (Version None)
Quarter: 2010Q1

REPORT INFORMATION
  Report Type: 
  Country: None (occurrence: None)
  Receive Date: 20100113
  Receipt Date: 20100113
  Transmission Date: 20100710
  Serious: No
  Sender: FDA-Public Use
  Company Number: None

PATIENT
  Age: 49 Year
  Sex: Male
  Weight: 122.4712 kg

DRUGS (2)
  1. ZICAM SEASONAL ALLERGY RELIEFGEL [Suspect]
     Indication: EYE PRURITUS
     Dosage: LABEL  RECOMMENDATIONS SAME NASAL
     Route: 045
     Dates: start: 20090415, end: 20090620
  2. ZICAM SEASONAL ALLERGY RELIEFGEL [Suspect]
     Indication: SNEEZING
     Dosage: LABEL  RECOMMENDATIONS SAME NASAL
     Route: 045
     Dates: start: 20090415, end: 20090620

REACTIONS (6)
  - AGEUSIA [None]
  - ANOSMIA [None]
  - HYPOGEUSIA [None]
  - HYPOSMIA [None]
  - NASAL DRYNESS [None]
  - SINUS CONGESTION [None]
